FAERS Safety Report 14538676 (Version 7)
Quarter: 2018Q2

REPORT INFORMATION
  Report Type: Report from Study
  Country: JP (occurrence: JP)
  Receive Date: 20180216
  Receipt Date: 20180426
  Transmission Date: 20180711
  Serious: Yes (Death, Life-Threatening, Other)
  Sender: FDA-Public Use
  Company Number: JP-BRISTOL-MYERS SQUIBB COMPANY-BMS-2018-013564

PATIENT
  Age: 68 Year
  Sex: Female

DRUGS (5)
  1. DOXORUBICIN HYDROCHLORIDE. [Suspect]
     Active Substance: DOXORUBICIN HYDROCHLORIDE
     Indication: ADRENOCORTICAL CARCINOMA
     Dosage: 20 MG/M2, (DAY 1, 8 EVERY 4 WEEKS)
     Route: 065
  2. MITOTANE [Suspect]
     Active Substance: MITOTANE
     Indication: ADRENAL GLAND CANCER METASTATIC
     Dosage: 1.5 G, QD
     Route: 048
  3. ETOPOSIDE. [Suspect]
     Active Substance: ETOPOSIDE
     Indication: ADRENOCORTICAL CARCINOMA
     Dosage: 100 MG/M2, (DAY 5 TO 7 EVERY 4 WEEKS)
     Route: 048
  4. CISPLATIN. [Suspect]
     Active Substance: CISPLATIN
     Indication: ADRENOCORTICAL CARCINOMA
     Dosage: 40 MG/M2, (DAY 1, 8 EVERY 4 WEEKS)
     Route: 065
  5. MITOTANE [Suspect]
     Active Substance: MITOTANE
     Indication: PRODUCT USED FOR UNKNOWN INDICATION
     Dosage: 7.5 G, QD
     Route: 048

REACTIONS (6)
  - Febrile neutropenia [Unknown]
  - Neutropenia [Unknown]
  - Malignant neoplasm progression [Fatal]
  - Hyponatraemia [Unknown]
  - Adrenal insufficiency [Unknown]
  - Haematotoxicity [Unknown]
